FAERS Safety Report 25585366 (Version 1)
Quarter: 2025Q3

REPORT INFORMATION
  Report Type: Spontaneous
  Country: US (occurrence: None)
  Receive Date: 20250718
  Receipt Date: 20250718
  Transmission Date: 20251021
  Serious: Yes (Hospitalization)
  Sender: FDA-CTU
  Company Number: None

PATIENT
  Age: 71 Year
  Sex: Female

DRUGS (11)
  1. TASIGNA [Suspect]
     Active Substance: NILOTINIB
     Indication: Leukaemia
     Dosage: FREQUENCY : TWICE A DAY;?
     Route: 048
     Dates: start: 20200207
  2. LEVOTHYROXINE [Concomitant]
     Active Substance: LEVOTHYROXINE
  3. MIDODRINE [Concomitant]
     Active Substance: MIDODRINE
  4. PREDNISONE [Concomitant]
     Active Substance: PREDNISONE
  5. BUMETANIDE [Concomitant]
     Active Substance: BUMETANIDE
  6. METOPROLOL TARTRATE [Concomitant]
     Active Substance: METOPROLOL TARTRATE
  7. OZEMPIC [Concomitant]
     Active Substance: SEMAGLUTIDE
  8. BUDESONIDE [Concomitant]
     Active Substance: BUDESONIDE
  9. ALBUTEROL [Concomitant]
     Active Substance: ALBUTEROL
  10. EZETIMIBE [Concomitant]
     Active Substance: EZETIMIBE
  11. ROSUVASTATIN [Concomitant]
     Active Substance: ROSUVASTATIN

REACTIONS (1)
  - Hospitalisation [None]
